FAERS Safety Report 8881977 (Version 1)
Quarter: 2012Q4

REPORT INFORMATION
  Report Type: 
  Country: ES (occurrence: ES)
  Receive Date: 20121101
  Receipt Date: 20121101
  Transmission Date: 20130627
  Serious: Yes (Hospitalization)
  Sender: FDA-Public Use
  Company Number: PHHY2012ES097914

PATIENT
  Age: 80 Year
  Sex: Female

DRUGS (2)
  1. LISINOPRIL [Suspect]
     Indication: HYPERTENSION
     Dosage: 20 mg, QD
     Route: 048
     Dates: start: 2011, end: 20120404
  2. METFORMIN [Concomitant]
     Indication: DIABETES MELLITUS
     Dosage: 1.74 g, BID
     Route: 048
     Dates: end: 20120404

REACTIONS (3)
  - Lactic acidosis [Recovered/Resolved]
  - Cerebrovascular accident [Recovered/Resolved]
  - Heart rate increased [Unknown]
